FAERS Safety Report 6086327-9 (Version None)
Quarter: 2009Q1

REPORT INFORMATION
  Report Type: 
  Country: None (occurrence: None)
  Receive Date: 20090217
  Receipt Date: 20080904
  Transmission Date: 20090719
  Serious: Yes (Hospitalization)
  Sender: FDA-Public Use
  Company Number: MC200800411

PATIENT
  Sex: Female

DRUGS (5)
  1. ANGIOMAX [Suspect]
     Indication: PERCUTANEOUS CORONARY INTERVENTION
     Dosage: 11.3 ML, BOLUS, INTRAVENOUS; 26 ML, HR, INTRAVENOUS; 26 ML, HR, INTRAVENOUS; 0.2 MG/KG, HR, INTRAVEN
     Route: 042
     Dates: start: 20080904, end: 20080904
  2. ANGIOMAX [Suspect]
     Indication: PERCUTANEOUS CORONARY INTERVENTION
     Dosage: 11.3 ML, BOLUS, INTRAVENOUS; 26 ML, HR, INTRAVENOUS; 26 ML, HR, INTRAVENOUS; 0.2 MG/KG, HR, INTRAVEN
     Route: 042
     Dates: start: 20080904, end: 20080904
  3. ANGIOMAX [Suspect]
     Indication: PERCUTANEOUS CORONARY INTERVENTION
     Dosage: 11.3 ML, BOLUS, INTRAVENOUS; 26 ML, HR, INTRAVENOUS; 26 ML, HR, INTRAVENOUS; 0.2 MG/KG, HR, INTRAVEN
     Route: 042
     Dates: start: 20080904, end: 20080904
  4. ANGIOMAX [Suspect]
     Indication: PERCUTANEOUS CORONARY INTERVENTION
     Dosage: 11.3 ML, BOLUS, INTRAVENOUS; 26 ML, HR, INTRAVENOUS; 26 ML, HR, INTRAVENOUS; 0.2 MG/KG, HR, INTRAVEN
     Route: 042
     Dates: start: 20080904, end: 20080904
  5. ANGIOMAX [Suspect]
     Indication: PERCUTANEOUS CORONARY INTERVENTION
     Dosage: 11.3 ML, BOLUS, INTRAVENOUS; 26 ML, HR, INTRAVENOUS; 26 ML, HR, INTRAVENOUS; 0.2 MG/KG, HR, INTRAVEN
     Route: 042
     Dates: start: 20080904

REACTIONS (1)
  - COAGULATION TIME ABNORMAL [None]
